FAERS Safety Report 9991913 (Version 1)
Quarter: 2014Q1

REPORT INFORMATION
  Report Type: Spontaneous
  Country: US (occurrence: US)
  Receive Date: 20140310
  Receipt Date: 20140310
  Transmission Date: 20141002
  Serious: No
  Sender: FDA-Public Use
  Company Number: US-VIIV HEALTHCARE LIMITED-A1054284A

PATIENT
  Sex: 0

DRUGS (2)
  1. TIVICAY [Suspect]
     Route: 048
     Dates: start: 201311, end: 201312
  2. MULTIPLE MEDICATIONS [Concomitant]

REACTIONS (2)
  - Nausea [Recovered/Resolved]
  - Insomnia [Unknown]
